FAERS Safety Report 23134707 (Version 4)
Quarter: 2023Q4

REPORT INFORMATION
  Report Type: Spontaneous
  Country: DE (occurrence: DE)
  Receive Date: 20231101
  Receipt Date: 20231128
  Transmission Date: 20240110
  Serious: Yes (Other)
  Sender: FDA-Public Use
  Company Number: DE-MYOVANT SCIENCES GMBH-2023MYSCI1001013

PATIENT
  Age: 81 Year
  Sex: Male
  Weight: 85 kg

DRUGS (9)
  1. ORGOVYX [Suspect]
     Active Substance: RELUGOLIX
     Indication: Prostate cancer
     Dosage: 120 MILLIGRAM, QD
     Route: 065
     Dates: start: 20230401
  2. THIOCTIC ACID [Suspect]
     Active Substance: THIOCTIC ACID
     Indication: Osteoarthritis
     Dosage: UNK
     Route: 065
  3. TAURINE [Suspect]
     Active Substance: TAURINE
     Indication: Osteoarthritis
     Dosage: UNK
     Route: 065
  4. FOLIC ACID [Suspect]
     Active Substance: FOLIC ACID
     Indication: Osteoarthritis
     Dosage: UNK
     Route: 065
  5. DIMETHYL SULFONE [Suspect]
     Active Substance: DIMETHYL SULFONE
     Indication: Osteoarthritis
     Dosage: UNK
     Route: 065
  6. UBIDECARENONE [Suspect]
     Active Substance: UBIDECARENONE
     Indication: Osteoarthritis
     Dosage: UNK
     Route: 065
  7. URIDINE 5^-TRIPHOSPHATE [Suspect]
     Active Substance: URIDINE 5^-TRIPHOSPHATE
     Indication: Osteoarthritis
     Dosage: UNK
     Route: 065
  8. CALCIUM [Suspect]
     Active Substance: CALCIUM
     Indication: Osteoarthritis
     Dosage: UNK
     Route: 065
  9. CHOLECALCIFEROL [Suspect]
     Active Substance: CHOLECALCIFEROL
     Indication: Osteoarthritis
     Dosage: UNK
     Route: 065

REACTIONS (5)
  - Polyneuropathy [Unknown]
  - Disease progression [Unknown]
  - Prostatic specific antigen increased [Unknown]
  - Osteoarthritis [Unknown]
  - Drug interaction [Unknown]
